FAERS Safety Report 23654688 (Version 2)
Quarter: 2024Q2

REPORT INFORMATION
  Report Type: Spontaneous
  Country: AT (occurrence: AT)
  Receive Date: 20240320
  Receipt Date: 20240404
  Transmission Date: 20240715
  Serious: Yes (Hospitalization, Other)
  Sender: FDA-Public Use
  Company Number: None

PATIENT
  Age: 39 Year
  Sex: Female

DRUGS (15)
  1. CYCLOPHOSPHAMIDE [Suspect]
     Active Substance: CYCLOPHOSPHAMIDE
     Indication: Breast neoplasm
     Dosage: 10005.5 MG (CYCLOPHOSPHAMID SANDOZ PLV F. INF.LSG (600MG/M2) IN NACL 0,9% 500ML ?BER 60 MIN)
     Route: 065
     Dates: start: 20231213, end: 20231213
  2. CYCLOPHOSPHAMIDE [Suspect]
     Active Substance: CYCLOPHOSPHAMIDE
     Dosage: 10005.5 MG (CYCLOPHOSPHAMID SANDOZ PLV F. INF.LSG (600MG/M2) IN NACL 0,9% 500ML ?BER 60 MIN)
     Route: 065
     Dates: start: 20240103, end: 20240103
  3. CYCLOPHOSPHAMIDE [Suspect]
     Active Substance: CYCLOPHOSPHAMIDE
     Dosage: 10005.5 MG (CYCLOPHOSPHAMID SANDOZ PLV F. INF.LSG (600MG/M2) IN NACL 0,9% 500ML ?BER 60 MIN)
     Route: 065
     Dates: start: 20240131, end: 20240131
  4. EPIRUBICIN [Suspect]
     Active Substance: EPIRUBICIN
     Dosage: 150.82 MG (EPIRUBICIN ACCORD LSG (90MG
     Route: 065
     Dates: start: 20240131, end: 20240131
  5. EPIRUBICIN [Suspect]
     Active Substance: EPIRUBICIN
     Indication: Breast neoplasm
     Dosage: 150.82 MG (EPIRUBICIN ACCORD LSG (90MG/M2) AD NACL 0,9% 250ML ?BER 10 MIN)
     Route: 065
     Dates: start: 20231213, end: 20231213
  6. EPIRUBICIN [Suspect]
     Active Substance: EPIRUBICIN
     Dosage: 150.82 MG (EPIRUBICIN ACCORD LSG (90MG/M2) AD NACL 0,9% 250ML ?BER 10 MIN)
     Route: 065
     Dates: start: 20240103, end: 20240103
  7. PERJETA [Suspect]
     Active Substance: PERTUZUMAB
     Indication: Breast neoplasm
     Dosage: 420 MG (PERJETA KONZ Z. INF.LSG IN NACL 0,9% 250ML ?BER 30 MIN)
     Route: 065
     Dates: start: 20231213, end: 20231213
  8. PERJETA [Suspect]
     Active Substance: PERTUZUMAB
     Dosage: 420 MG (PERJETA KONZ Z. INF.LSG IN NACL 0,9% 250ML ?BER 30 MIN)
     Route: 065
     Dates: start: 20240103, end: 20240103
  9. PERJETA [Suspect]
     Active Substance: PERTUZUMAB
     Dosage: 420 MG (PERJETA KONZ Z. INF.LSG IN NACL 0,9% 250ML ?BER 30 MIN)
     Route: 065
     Dates: start: 20240131, end: 20240131
  10. PERJETA [Suspect]
     Active Substance: PERTUZUMAB
     Dosage: 420 MG (PERJETA KONZ Z. INF.LSG IN NACL 0,9% 250ML ?BER 30 MIN)
     Route: 065
     Dates: start: 20240229, end: 20240229
  11. PERTUZUMAB [Suspect]
     Active Substance: PERTUZUMAB
     Indication: Breast neoplasm
     Dosage: UNK
     Route: 065
     Dates: start: 20231213, end: 20231213
  12. PERTUZUMAB [Suspect]
     Active Substance: PERTUZUMAB
     Dosage: UNK
     Route: 065
     Dates: start: 20240103, end: 20240103
  13. PERTUZUMAB [Suspect]
     Active Substance: PERTUZUMAB
     Dosage: UNK
     Route: 065
     Dates: start: 20240131, end: 20240131
  14. PERTUZUMAB [Suspect]
     Active Substance: PERTUZUMAB
     Dosage: UNK
     Route: 065
     Dates: start: 20240229, end: 20240229
  15. ZOFRAN [Suspect]
     Active Substance: ONDANSETRON HYDROCHLORIDE
     Indication: Vomiting
     Dosage: ZUSATZTHERAPIE BEI EMESIS BEI N.MAMMAE
     Route: 065

REACTIONS (7)
  - Serum ferritin increased [Recovering/Resolving]
  - Thrombocytopenia [Recovering/Resolving]
  - Blood lactate dehydrogenase increased [Recovering/Resolving]
  - Liver function test abnormal [Recovering/Resolving]
  - Diarrhoea [Recovered/Resolved]
  - General physical health deterioration [Recovered/Resolved]
  - Asthenia [Recovered/Resolved]

NARRATIVE: CASE EVENT DATE: 20240131
